FAERS Safety Report 10258772 (Version 2)
Quarter: 2014Q2

REPORT INFORMATION
  Report Type: Spontaneous
  Country: US (occurrence: US)
  Receive Date: 20140625
  Receipt Date: 20140625
  Transmission Date: 20141212
  Serious: No
  Sender: FDA-Public Use
  Company Number: US-ASTELLAS-2011US006263

PATIENT
  Sex: Female
  Weight: 60 kg

DRUGS (6)
  1. VESICARE [Suspect]
     Indication: HYPERTONIC BLADDER
     Route: 048
     Dates: start: 201107
  2. VESICARE [Suspect]
     Indication: NOCTURIA
  3. DIOVAN HCT [Concomitant]
     Indication: PRODUCT USED FOR UNKNOWN INDICATION
     Route: 065
  4. L THYROXINE [Concomitant]
     Indication: PRODUCT USED FOR UNKNOWN INDICATION
     Route: 065
  5. LOSARTAN [Concomitant]
     Indication: HYPERTENSION
     Route: 048
  6. LEVOTHYROXINE [Concomitant]
     Indication: THYROID DISORDER
     Route: 048

REACTIONS (1)
  - Drug ineffective for unapproved indication [Unknown]
